FAERS Safety Report 6718456-8 (Version None)
Quarter: 2010Q2

REPORT INFORMATION
  Report Type: 
  Country: None (occurrence: None)
  Receive Date: 20100510
  Receipt Date: 20100426
  Transmission Date: 20101027
  Serious: Yes (Hospitalization)
  Sender: FDA-Public Use
  Company Number: GB-MYLANLABS-2010S1002195

PATIENT
  Age: 78 Year
  Sex: Female

DRUGS (8)
  1. OMEPRAZOLE [Suspect]
     Indication: BARRETT'S OESOPHAGUS
     Route: 048
     Dates: start: 19990101, end: 20080101
  2. ESOMEPRAZOLE [Suspect]
     Indication: BARRETT'S OESOPHAGUS
     Dates: start: 20080101, end: 20080101
  3. PANTOPRAZOLE [Suspect]
     Indication: BARRETT'S OESOPHAGUS
     Dates: start: 20080101, end: 20080101
  4. ALFACALCIDOL [Concomitant]
     Indication: HYPOCALCAEMIA
  5. CALCICHEW D3 [Concomitant]
     Indication: HYPOCALCAEMIA
     Route: 048
  6. FUROSEMIDE [Concomitant]
     Indication: HYPERTENSION
  7. FUROSEMIDE [Concomitant]
     Indication: DRUG USE FOR UNKNOWN INDICATION
  8. STEROIDS [Concomitant]
     Indication: ARTHRALGIA

REACTIONS (8)
  - CIRCULATORY COLLAPSE [None]
  - GAIT DISTURBANCE [None]
  - HYPOCALCAEMIA [None]
  - HYPOMAGNESAEMIA [None]
  - LETHARGY [None]
  - MUSCLE SPASMS [None]
  - PARAESTHESIA [None]
  - TETANY [None]
